FAERS Safety Report 23462183 (Version 1)
Quarter: 2024Q1

REPORT INFORMATION
  Report Type: Spontaneous
  Country: CA (occurrence: CA)
  Receive Date: 20240131
  Receipt Date: 20240131
  Transmission Date: 20240410
  Serious: Yes (Other)
  Sender: FDA-Public Use
  Company Number: CA-002147023-NVSC2024CA016495

PATIENT
  Sex: Female

DRUGS (2)
  1. RIBOCICLIB [Suspect]
     Active Substance: RIBOCICLIB
     Indication: Hormone therapy
     Dosage: UNK
     Route: 065
  2. IBRANCE [Suspect]
     Active Substance: PALBOCICLIB
     Indication: Hormone therapy
     Dosage: 1 DOSAGE FORM (PILL) (21DAYS/28)
     Route: 065

REACTIONS (3)
  - Hepatotoxicity [Unknown]
  - Drug intolerance [Unknown]
  - Off label use [Unknown]
